FAERS Safety Report 6436723-2 (Version None)
Quarter: 2009Q4

REPORT INFORMATION
  Report Type: 
  Country: None (occurrence: None)
  Receive Date: 20091111
  Receipt Date: 20091104
  Transmission Date: 20100525
  Serious: Yes (Hospitalization, Disabling)
  Sender: FDA-Public Use
  Company Number: US-GILEAD-2009-0025260

PATIENT
  Sex: Male
  Weight: 81 kg

DRUGS (2)
  1. VISTIDE [Suspect]
     Indication: CYTOMEGALOVIRUS TEST POSITIVE
     Route: 042
     Dates: start: 20090101, end: 20090601
  2. ATRIPLA [Suspect]
     Indication: HIV INFECTION

REACTIONS (2)
  - IRITIS [None]
  - RENAL FAILURE ACUTE [None]
